FAERS Safety Report 7335014-5 (Version None)
Quarter: 2011Q1

REPORT INFORMATION
  Report Type: 
  Country: None (occurrence: None)
  Receive Date: 20110307
  Receipt Date: 20110301
  Transmission Date: 20110831
  Serious: Yes (Hospitalization)
  Sender: FDA-Public Use
  Company Number: GB-ROCHE-763034

PATIENT
  Sex: Male
  Weight: 70 kg

DRUGS (8)
  1. ORAMORPH SR [Concomitant]
     Route: 042
     Dates: start: 20101026, end: 20101106
  2. FENTANYL [Concomitant]
     Route: 050
     Dates: start: 20101026
  3. CISPLATIN [Suspect]
     Dosage: DATE OF MOST RECENT ADMINISTRATION: 09 AUGUST 2010
     Route: 042
     Dates: start: 20100628
  4. EPIRUBICIN [Suspect]
     Dosage: DATE OF MOST RECENT ADMINISTRATION: 09 AUGUST 2010.
     Route: 042
     Dates: start: 20100628
  5. DEXAMETHASONE [Concomitant]
     Route: 048
     Dates: start: 20101026, end: 20101106
  6. METOCLOPRAMIDE HCL [Concomitant]
     Route: 048
     Dates: start: 20101026, end: 20101106
  7. CAPECITABINE [Suspect]
     Dosage: DATE OF RECENT ADMINISTRATION: 29 AUGUST 2010.
     Route: 048
     Dates: start: 20100628
  8. BEVACIZUMAB [Suspect]
     Dosage: DATE OF MOST RECENT ADMINISTRATION: 09 AUG 2010.
     Route: 042
     Dates: start: 20100628

REACTIONS (1)
  - GASTRIC PERFORATION [None]
